FAERS Safety Report 9486533 (Version 4)
Quarter: 2014Q4

REPORT INFORMATION
  Report Type: Spontaneous
  Country: US (occurrence: US)
  Receive Date: 20130829
  Receipt Date: 20141002
  Transmission Date: 20150529
  Serious: Yes (Hospitalization, Other)
  Sender: FDA-Public Use
  Company Number: US-009507513-2009SP038212

PATIENT
  Sex: Female
  Weight: 85.73 kg

DRUGS (14)
  1. IBUPROFEN. [Concomitant]
     Active Substance: IBUPROFEN
     Indication: PRODUCT USED FOR UNKNOWN INDICATION
     Dosage: UPDATE (04MAY2010)
  2. CALCIUM (UNSPECIFIED) (+) VITAMIN D (UNSPECIFIED) [Concomitant]
     Active Substance: CALCIUM CARBONATE\VITAMIN D
     Indication: PRODUCT USED FOR UNKNOWN INDICATION
     Dosage: 1 DF, QD
  3. NUVARING [Suspect]
     Active Substance: ETHINYL ESTRADIOL\ETONOGESTREL
     Indication: MENSTRUAL CYCLE MANAGEMENT
     Dosage: 1 DF, QM
     Route: 067
     Dates: start: 2002, end: 200606
  4. ARMOUR THYROID [Concomitant]
     Active Substance: THYROID, PORCINE\THYROID, UNSPECIFIED
     Indication: HYPOTHYROIDISM
     Dates: start: 199810
  5. XANAX [Concomitant]
     Active Substance: ALPRAZOLAM
     Indication: ANXIETY
     Dosage: Q 8HR PRN. UPDATE (04MAY2010)
     Route: 048
     Dates: start: 20060506
  6. PROZAC [Concomitant]
     Active Substance: FLUOXETINE HYDROCHLORIDE
     Indication: PRODUCT USED FOR UNKNOWN INDICATION
     Dosage: UPDATE (04MAY2010)
  7. PLAVIX [Concomitant]
     Active Substance: CLOPIDOGREL BISULFATE
     Indication: PRODUCT USED FOR UNKNOWN INDICATION
     Dosage: UPDATE (04MAY2010)
  8. LEVOXYL [Concomitant]
     Active Substance: LEVOTHYROXINE SODIUM
     Indication: PRODUCT USED FOR UNKNOWN INDICATION
     Dosage: 100 ?G, QD
     Route: 048
  9. VITAMINS (UNSPECIFIED) [Concomitant]
     Active Substance: VITAMINS
     Indication: PRODUCT USED FOR UNKNOWN INDICATION
     Dosage: 1 DF, QD
     Dates: start: 199810
  10. LEXAPRO [Concomitant]
     Active Substance: ESCITALOPRAM OXALATE
     Indication: PRODUCT USED FOR UNKNOWN INDICATION
     Dosage: UPDATE (04MAY2010)
     Route: 048
  11. SYNTHROID [Concomitant]
     Active Substance: LEVOTHYROXINE SODIUM
     Indication: HYPOTHYROIDISM
     Dosage: UPDATE (04MAY2010)
  12. DARVOCET-N 100 [Concomitant]
     Active Substance: ACETAMINOPHEN\PROPOXYPHENE NAPSYLATE
     Indication: PAIN
     Dosage: Q 4-6 HRS. UPDATE (04MAY2010)
  13. NUVARING [Suspect]
     Active Substance: ETHINYL ESTRADIOL\ETONOGESTREL
     Indication: UTERINE LEIOMYOMA
  14. TAMIFLU [Concomitant]
     Active Substance: OSELTAMIVIR PHOSPHATE
     Indication: PRODUCT USED FOR UNKNOWN INDICATION
     Dosage: UPDATE (04MAY2010)
     Dates: start: 20051229

REACTIONS (34)
  - Hypokalaemia [Recovered/Resolved]
  - Varicose vein [Unknown]
  - Vomiting [Unknown]
  - Deep vein thrombosis [Recovered/Resolved]
  - Influenza [Unknown]
  - Dysmenorrhoea [Unknown]
  - Sepsis [Recovered/Resolved]
  - Constipation [Unknown]
  - Diarrhoea [Not Recovered/Not Resolved]
  - Premenstrual dysphoric disorder [Unknown]
  - Trigeminal neuralgia [Not Recovered/Not Resolved]
  - Arteriosclerosis [Unknown]
  - Demyelination [Unknown]
  - Cerebrovascular accident [Recovered/Resolved with Sequelae]
  - Off label use [Unknown]
  - Abscess limb [Recovering/Resolving]
  - Diffuse vasculitis [Unknown]
  - Orthostatic hypotension [Unknown]
  - Palpitations [Unknown]
  - Incontinence [Unknown]
  - Chronic sinusitis [Not Recovered/Not Resolved]
  - Headache [Not Recovered/Not Resolved]
  - Fatigue [Unknown]
  - Biopsy breast [Unknown]
  - Anaemia [Unknown]
  - Drug hypersensitivity [Unknown]
  - Headache [Unknown]
  - Dehydration [Recovering/Resolving]
  - Weight fluctuation [Unknown]
  - Fibromyalgia [Unknown]
  - Muscle spasms [Unknown]
  - Nausea [Unknown]
  - Parametritis [Recovering/Resolving]
  - Nausea [Unknown]

NARRATIVE: CASE EVENT DATE: 20030130
